FAERS Safety Report 23892942 (Version 1)
Quarter: 2024Q2

REPORT INFORMATION
  Report Type: Spontaneous
  Country: US (occurrence: None)
  Receive Date: 20240524
  Receipt Date: 20240524
  Transmission Date: 20240716
  Serious: No
  Sender: FDA-Public Use
  Company Number: US-ROCHE-3510653

PATIENT
  Age: 82 Year
  Sex: Female
  Weight: 54.48 kg

DRUGS (12)
  1. ACTEMRA [Suspect]
     Active Substance: TOCILIZUMAB
     Indication: Giant cell arteritis
     Dosage: STRENGTH: 162 MG/0.9 ML
     Route: 058
     Dates: start: 202311
  2. ACTEMRA [Suspect]
     Active Substance: TOCILIZUMAB
  3. PREDNISONE [Concomitant]
     Active Substance: PREDNISONE
     Indication: Giant cell arteritis
     Route: 048
     Dates: start: 20240211
  4. PREDNISONE [Concomitant]
     Active Substance: PREDNISONE
     Route: 048
     Dates: start: 20240204, end: 20240210
  5. PREDNISONE [Concomitant]
     Active Substance: PREDNISONE
     Dosage: DOSE PRIOR TO HAVING IT INCREASE TO 15 MG
     Route: 048
     Dates: end: 20240203
  6. ELIQUIS [Concomitant]
     Active Substance: APIXABAN
     Dosage: STARTED BEFORE ACTEMRA
     Route: 048
  7. PANTOPRAZOLE [Concomitant]
     Active Substance: PANTOPRAZOLE
     Indication: Gastrooesophageal reflux disease
     Dosage: STARTED BEFORE ACTEMRA
     Route: 048
  8. RESTASIS [Concomitant]
     Active Substance: CYCLOSPORINE
     Indication: Dry eye
     Dosage: 1 GTT IN EACH EYE; STARTED BEFORE ACTEMRA
     Route: 047
  9. DORZOLAMIDE [Concomitant]
     Active Substance: DORZOLAMIDE
     Indication: Glaucoma
     Dosage: 1 DROP IN THE LEFT EYE TWICE A DAY; STARTED BEFORE ACTEMRA
     Route: 047
  10. LATANOPROST [Concomitant]
     Active Substance: LATANOPROST
     Indication: Glaucoma
     Dosage: 1 DROP LEFT EYE AT NIGHT; STARTED BEFORE ACTEMRA
     Route: 047
  11. ROSUVASTATIN [Concomitant]
     Active Substance: ROSUVASTATIN
     Dosage: STARTED BEFORE ACTEMRA
     Route: 048
  12. CALCIUM [Concomitant]
     Active Substance: CALCIUM
     Indication: Osteopenia
     Route: 048

REACTIONS (7)
  - Head discomfort [Unknown]
  - Hypoaesthesia [Unknown]
  - Diplopia [Not Recovered/Not Resolved]
  - Glaucoma [Unknown]
  - Asthenia [Unknown]
  - Dizziness [Unknown]
  - Product complaint [Unknown]

NARRATIVE: CASE EVENT DATE: 20240101
